FAERS Safety Report 5007886-0 (Version None)
Quarter: 2006Q2

REPORT INFORMATION
  Report Type: 
  Country: None (occurrence: None)
  Receive Date: 20060522
  Receipt Date: 20060511
  Transmission Date: 20061013
  Serious: Yes (Death)
  Sender: FDA-Public Use
  Company Number: JP-JNJFOC-20060405188

PATIENT
  Sex: Female

DRUGS (6)
  1. CRAVIT [Suspect]
     Indication: URINARY TRACT INFECTION
     Route: 048
     Dates: start: 20060325, end: 20060330
  2. CEFMETAZON [Suspect]
     Route: 042
  3. CEFMETAZON [Suspect]
     Indication: PNEUMONIA
     Route: 042
  4. CLARITHROMYCIN [Suspect]
     Indication: PNEUMONIA
     Route: 048
     Dates: start: 20060331, end: 20060406
  5. SULPERAZON [Suspect]
     Route: 042
     Dates: start: 20060307, end: 20060320
  6. SULPERAZON [Suspect]
     Indication: DRUG USE FOR UNKNOWN INDICATION
     Route: 042
     Dates: start: 20060307, end: 20060320

REACTIONS (4)
  - CARDIAC FAILURE [None]
  - HAEMOGLOBIN DECREASED [None]
  - RENAL FAILURE [None]
  - TOXIC EPIDERMAL NECROLYSIS [None]
